FAERS Safety Report 20058246 (Version 1)
Quarter: 2021Q4

REPORT INFORMATION
  Report Type: Spontaneous
  Country: CN (occurrence: CN)
  Receive Date: 20211111
  Receipt Date: 20211111
  Transmission Date: 20220303
  Serious: Yes (Hospitalization, Other)
  Sender: FDA-Public Use
  Company Number: CN-PFIZER INC-202101500060

PATIENT
  Age: 4 Year
  Sex: Female

DRUGS (4)
  1. AZITHROMYCIN [Interacting]
     Active Substance: AZITHROMYCIN
     Indication: Tonsillitis
     Dosage: 10 MG/KG, DAILY FOR 7 D
     Route: 041
     Dates: start: 2018, end: 2018
  2. AZITHROMYCIN [Interacting]
     Active Substance: AZITHROMYCIN
     Dosage: 10 MG/KG, DAILY, WITHDRAWN FOR 4 D THEN AGAIN FOR 2 D
     Route: 041
     Dates: start: 2018, end: 2018
  3. IBUPROFEN [Interacting]
     Active Substance: IBUPROFEN
     Indication: Pyrexia
     Dosage: UNK
     Route: 048
  4. CEFIXIME [Interacting]
     Active Substance: CEFIXIME
     Route: 048

REACTIONS (3)
  - Vanishing bile duct syndrome [Recovered/Resolved]
  - Potentiating drug interaction [Unknown]
  - Off label use [Unknown]

NARRATIVE: CASE EVENT DATE: 20180101
